FAERS Safety Report 8814969 (Version 2)
Quarter: 2014Q2

REPORT INFORMATION
  Report Type: Report from Study
  Country: US (occurrence: US)
  Receive Date: 20120928
  Receipt Date: 20140502
  Transmission Date: 20141212
  Serious: Yes (Other)
  Sender: FDA-Public Use
  Company Number: US-ROCHE-1128970

PATIENT
  Sex: Female

DRUGS (10)
  1. AVASTIN [Suspect]
     Indication: PRODUCT USED FOR UNKNOWN INDICATION
     Route: 065
  2. LUCENTIS [Suspect]
     Indication: AGE-RELATED MACULAR DEGENERATION
     Dosage: OS
     Route: 050
  3. LUCENTIS [Suspect]
     Indication: CHOROIDAL NEOVASCULARISATION
  4. OMEGA 3 [Concomitant]
     Route: 065
  5. CALCIUM D 500 [Concomitant]
     Route: 065
  6. STERILID [Concomitant]
  7. TETRACAINE 1% [Concomitant]
  8. MYDRIACYL [Concomitant]
     Route: 065
  9. NEO-SYNEPHRINE [Concomitant]
     Route: 065
  10. COUMADIN [Concomitant]

REACTIONS (12)
  - Lung neoplasm malignant [Unknown]
  - Eye infection [Unknown]
  - Blindness [Unknown]
  - Cystoid macular oedema [Unknown]
  - Suspected transmission of an infectious agent via product [Unknown]
  - Retinal neovascularisation [Unknown]
  - Vision blurred [Unknown]
  - Macular fibrosis [Unknown]
  - Visual impairment [Unknown]
  - Retinal fibrosis [Unknown]
  - Malaise [Unknown]
  - Periorbital fat herniation [Unknown]
